FAERS Safety Report 24165349 (Version 3)
Quarter: 2024Q3

REPORT INFORMATION
  Report Type: Spontaneous
  Country: US (occurrence: US)
  Receive Date: 20240802
  Receipt Date: 20240926
  Transmission Date: 20241016
  Serious: No
  Sender: MERCK
  Company Number: US-009507513-2407USA003474

PATIENT
  Sex: Female

DRUGS (2)
  1. WINREVAIR [Suspect]
     Active Substance: SOTATERCEPT-CSRK
     Indication: Pulmonary arterial hypertension
     Dosage: 1.1 MILLILITER
     Route: 065
     Dates: start: 20240705
  2. LETAIRIS [Suspect]
     Active Substance: AMBRISENTAN
     Dosage: 10 MILLIGRAM, QD

REACTIONS (15)
  - Ill-defined disorder [Unknown]
  - Diarrhoea [Unknown]
  - Head discomfort [Unknown]
  - Ocular hyperaemia [Unknown]
  - Sinus congestion [Unknown]
  - Platelet count decreased [Unknown]
  - Brain natriuretic peptide decreased [Unknown]
  - Headache [Unknown]
  - Drug withdrawal syndrome [Unknown]
  - Ill-defined disorder [Unknown]
  - Asthenia [Unknown]
  - Feeling abnormal [Unknown]
  - Depressed mood [Unknown]
  - Incorrect dose administered [Unknown]
  - Product administration interrupted [Unknown]

NARRATIVE: CASE EVENT DATE: 20240101
